FAERS Safety Report 10357518 (Version 1)
Quarter: 2014Q3

REPORT INFORMATION
  Report Type: Spontaneous
  Country: US (occurrence: None)
  Receive Date: 20140730
  Receipt Date: 20140730
  Transmission Date: 20150326
  Serious: No
  Sender: FDA-Public Use
  Company Number: None

PATIENT
  Age: 75 Year
  Sex: Female
  Weight: 50.8 kg

DRUGS (9)
  1. VITAMIN D [Concomitant]
     Active Substance: CHOLECALCIFEROL
  2. METOPROLOL ER TAB SUC [Suspect]
     Active Substance: METOPROLOL
     Indication: HYPERTENSION
     Dosage: 1 1/2 PILL  ONCE DAILY BY MOUTH
     Route: 048
     Dates: start: 20140506, end: 20140517
  3. MULTI-VITAMIN + MINERAL IRON + COPPER FREE [Concomitant]
  4. CALCIUM [Concomitant]
     Active Substance: CALCIUM
  5. EVISTA [Concomitant]
     Active Substance: RALOXIFENE HYDROCHLORIDE
  6. METOPROLOL ER TAB SUC [Suspect]
     Active Substance: METOPROLOL
     Indication: SINUS TACHYCARDIA
     Dosage: 1 1/2 PILL  ONCE DAILY BY MOUTH
     Route: 048
     Dates: start: 20140506, end: 20140517
  7. MAGNESIUM [Concomitant]
     Active Substance: MAGNESIUM
  8. TOPROL XL [Concomitant]
     Active Substance: METOPROLOL SUCCINATE
  9. ASPIRIN. [Concomitant]
     Active Substance: ASPIRIN

REACTIONS (5)
  - Heart rate irregular [None]
  - Palpitations [None]
  - Dizziness [None]
  - Pollakiuria [None]
  - Tinnitus [None]
